FAERS Safety Report 8279625-1 (Version None)
Quarter: 2012Q2

REPORT INFORMATION
  Report Type: 
  Country: None (occurrence: None)
  Receive Date: 20120412
  Receipt Date: 20120111
  Transmission Date: 20120825
  Serious: No
  Sender: FDA-Public Use
  Company Number: US-ASTRAZENECA-2012SE02272

PATIENT
  Sex: Female

DRUGS (5)
  1. NEXIUM [Suspect]
     Indication: GASTROOESOPHAGEAL REFLUX DISEASE
     Route: 048
  2. CHOLESTEROL MEDICATION [Concomitant]
  3. BLOOD PRESSURE MEDICATION [Concomitant]
  4. PRILOSEC [Suspect]
     Route: 048
  5. THYROID MEDICATION [Concomitant]

REACTIONS (6)
  - INCORRECT DOSE ADMINISTERED [None]
  - DYSPEPSIA [None]
  - ORAL MUCOSAL ERYTHEMA [None]
  - GLOSSODYNIA [None]
  - ABDOMINAL PAIN UPPER [None]
  - ORAL DISCOMFORT [None]
